FAERS Safety Report 17237782 (Version 5)
Quarter: 2022Q4

REPORT INFORMATION
  Report Type: Spontaneous
  Country: FR (occurrence: FR)
  Receive Date: 20200106
  Receipt Date: 20221128
  Transmission Date: 20230113
  Serious: Yes (Death, Congenital Anomaly, Other)
  Sender: FDA-Public Use
  Company Number: FR-UCBSA-2017023970

PATIENT
  Sex: Female
  Weight: 2.27 kg

DRUGS (14)
  1. CHOLECALCIFEROL [Suspect]
     Active Substance: CHOLECALCIFEROL
     Indication: Product used for unknown indication
     Dosage: 20000 IU, MONTHLY (QM) 666.6667 IU,  FROM: 3RD TRI
     Route: 064
     Dates: end: 20150818
  2. SPIRONOLACTONE [Suspect]
     Active Substance: SPIRONOLACTONE
     Indication: Product used for unknown indication
     Dosage: UNK
     Route: 064
     Dates: start: 20150220, end: 20150220
  3. INSULIN GLARGINE [Suspect]
     Active Substance: INSULIN GLARGINE
     Indication: Product used for unknown indication
     Dosage: UNK
     Route: 064
     Dates: start: 20150220, end: 20150818
  4. NEORAL [Suspect]
     Active Substance: CYCLOSPORINE
     Indication: Glomerulonephritis membranous
     Dosage: MATERNAL DOSE:400 MILLIGRAM,QD,200 MG,2X/DAY (BID)
     Route: 064
     Dates: start: 20150220, end: 20150818
  5. RAMIPRIL [Suspect]
     Active Substance: RAMIPRIL
     Indication: Product used for unknown indication
     Dosage: UNK
     Route: 064
     Dates: end: 20150220
  6. SPIRAMYCIN [Suspect]
     Active Substance: SPIRAMYCIN
     Indication: Product used for unknown indication
     Dosage: UNK
     Route: 064
     Dates: start: 20150220, end: 20150818
  7. SODIUM BICARBONATE [Suspect]
     Active Substance: SODIUM BICARBONATE
     Indication: Product used for unknown indication
     Dosage: 2 G, QD, 1 G, 2X/DAY (BID), MATERNAL DOSE: 2 G,QD
     Route: 064
     Dates: start: 20150220, end: 20150818
  8. ASPIRIN DL-LYSINE [Suspect]
     Active Substance: ASPIRIN DL-LYSINE
     Indication: Product used for unknown indication
     Dosage: 100 MG, ONCE DAILY (QD)
     Route: 064
     Dates: end: 20150818
  9. IRBESARTAN [Suspect]
     Active Substance: IRBESARTAN
     Indication: Product used for unknown indication
     Dosage: UNK
     Route: 064
     Dates: end: 20150220
  10. PRIMPERAN [Suspect]
     Active Substance: METOCLOPRAMIDE HYDROCHLORIDE
     Indication: Product used for unknown indication
     Dosage: 30 MILLIGRAM, QD, 10 MG,3X/DAY (TID),STRENGTH:30MG
     Route: 064
     Dates: start: 20150220, end: 20150818
  11. PROZAC [Suspect]
     Active Substance: FLUOXETINE HYDROCHLORIDE
     Indication: Product used for unknown indication
     Dosage: 20 MG, ONCE DAILY (QD)
     Route: 064
     Dates: start: 20150220, end: 20150818
  12. ATARAX [Suspect]
     Active Substance: HYDROXYZINE HYDROCHLORIDE
     Indication: Product used for unknown indication
     Dosage: 25 MG, ONCE DAILY (QD)
     Route: 064
     Dates: start: 20150220, end: 20150818
  13. EZETIMIBE\SIMVASTATIN [Suspect]
     Active Substance: EZETIMIBE\SIMVASTATIN
     Indication: Product used for unknown indication
     Dosage: UNK
     Route: 064
     Dates: end: 20150220
  14. FERROUS SULFATE\FOLIC ACID\GASTRIC MUCIN [Suspect]
     Active Substance: FERROUS SULFATE\FOLIC ACID\GASTRIC MUCIN
     Indication: Product used for unknown indication
     Dosage: 2 DOSAGE FORM, QD
     Route: 064
     Dates: end: 20150818

REACTIONS (7)
  - Multiple organ dysfunction syndrome [Fatal]
  - Disseminated intravascular coagulation [Fatal]
  - Congenital musculoskeletal disorder [Not Recovered/Not Resolved]
  - Talipes [Not Recovered/Not Resolved]
  - Dysmorphism [Not Recovered/Not Resolved]
  - Low birth weight baby [Unknown]
  - Foetal exposure during pregnancy [Recovered/Resolved]

NARRATIVE: CASE EVENT DATE: 20150220
